FAERS Safety Report 5874183-0 (Version None)
Quarter: 2008Q3

REPORT INFORMATION
  Report Type: 
  Country: None (occurrence: None)
  Receive Date: 20080908
  Receipt Date: 20080829
  Transmission Date: 20090109
  Serious: Yes (Other)
  Sender: FDA-Public Use
  Company Number: JP-SANOFI-SYNTHELABO-A01200810440

PATIENT
  Sex: Male

DRUGS (8)
  1. STARSIS [Concomitant]
     Route: 065
     Dates: start: 20070410, end: 20071123
  2. LEVOFOLINATE [Suspect]
     Route: 041
     Dates: start: 20070401
  3. FLUOROURACIL [Suspect]
     Route: 065
     Dates: start: 20070401
  4. BASEN [Concomitant]
     Route: 065
     Dates: start: 20070410, end: 20080515
  5. AVASTIN [Suspect]
     Route: 041
     Dates: start: 20071106
  6. ELPLAT [Suspect]
     Indication: COLON CANCER METASTATIC
     Route: 041
     Dates: start: 20080415, end: 20080415
  7. IRINOTECAN HCL [Suspect]
     Route: 041
     Dates: start: 20080513
  8. EUGLUCON [Concomitant]
     Route: 065
     Dates: start: 20071207, end: 20080515

REACTIONS (3)
  - RETINAL HAEMORRHAGE [None]
  - RETINAL TEAR [None]
  - VITREOUS HAEMORRHAGE [None]
